FAERS Safety Report 6215431-7 (Version None)
Quarter: 2009Q3

REPORT INFORMATION
  Report Type: 
  Country: None (occurrence: None)
  Receive Date: 20090603
  Receipt Date: 20090520
  Transmission Date: 20100115
  Serious: Yes (Hospitalization)
  Sender: FDA-Public Use
  Company Number: 2009AL003417

PATIENT
  Age: 46 Year
  Sex: Female
  Weight: 177 kg

DRUGS (13)
  1. GABAPENTIN [Suspect]
     Indication: DIABETIC NEUROPATHY
     Dosage: 300 MG;TID;
  2. HYDROCHLOROTHIAZIDE [Suspect]
     Indication: HYPERTENSION
     Dosage: 25 MG;QD;
  3. ALBUTEROL SULFATE AUTOHALER [Suspect]
     Indication: ASTHMA
     Dosage: 90 MICROGRAM;PRN; INH
     Route: 055
  4. METFORMIN HCL [Suspect]
     Indication: TYPE 2 DIABETES MELLITUS
     Dosage: 500 MG; BID;
  5. ALPRAZOLAM [Suspect]
     Indication: ANXIETY DISORDER
     Dosage: 0.5 MG; PRN;
  6. VENLAFAXINE HYDROCHLORIDE [Suspect]
     Indication: DEPRESSION
     Dosage: 150 MG; BID;
  7. FUROSEMIDE [Concomitant]
  8. ATORVASTATIN CALCIUM [Concomitant]
  9. OMEPRAZOLE [Concomitant]
  10. INSULIN LISPRO [Concomitant]
  11. FLUTICASONE W/SALMETEROL [Suspect]
  12. OXYCODONE HCL [Suspect]
  13. LISINOPRIL [Suspect]

REACTIONS (20)
  - ANAEMIA [None]
  - CARBON DIOXIDE ABNORMAL [None]
  - CHEST PAIN [None]
  - CONFUSIONAL STATE [None]
  - DEAFNESS [None]
  - DRUG LEVEL INCREASED [None]
  - DYSPNOEA [None]
  - HAEMODIALYSIS [None]
  - HALLUCINATION [None]
  - HEADACHE [None]
  - HYPERHIDROSIS [None]
  - HYPOVOLAEMIA [None]
  - INFECTION [None]
  - MYOCLONUS [None]
  - PLATELET COUNT INCREASED [None]
  - PNEUMONIA [None]
  - RENAL FAILURE [None]
  - RENAL TUBULAR NECROSIS [None]
  - URINARY TRACT INFECTION [None]
  - VISION BLURRED [None]
